FAERS Safety Report 18355336 (Version 1)
Quarter: 2020Q4

REPORT INFORMATION
  Report Type: Spontaneous
  Country: US (occurrence: US)
  Receive Date: 20201006
  Receipt Date: 20201006
  Transmission Date: 20210114
  Serious: Yes (Hospitalization)
  Sender: FDA-Public Use
  Company Number: None

PATIENT
  Age: 74 Year
  Sex: Male
  Weight: 107 kg

DRUGS (1)
  1. METHOTREXATE (METHOTREXATE NA 2.5MG TAB) [Suspect]
     Active Substance: METHOTREXATE
     Indication: RHEUMATOID ARTHRITIS
     Route: 048
     Dates: start: 20080916, end: 20200218

REACTIONS (8)
  - Decreased appetite [None]
  - Fatigue [None]
  - Drug-induced liver injury [None]
  - Alanine aminotransferase increased [None]
  - Liver function test increased [None]
  - Abdominal pain [None]
  - Aspartate aminotransferase increased [None]
  - Chills [None]

NARRATIVE: CASE EVENT DATE: 20200218
